FAERS Safety Report 6928268-8 (Version None)
Quarter: 2010Q3

REPORT INFORMATION
  Report Type: 
  Country: None (occurrence: None)
  Receive Date: 20100810
  Receipt Date: 20100727
  Transmission Date: 20110219
  Serious: Yes (Other)
  Sender: FDA-Public Use
  Company Number: 7012600

PATIENT
  Age: 40 Year
  Sex: Female
  Weight: 92 kg

DRUGS (7)
  1. REBIF [Suspect]
     Indication: MULTIPLE SCLEROSIS
     Dosage: 44 MCG, SUBCUTANEOUS
     Route: 058
     Dates: end: 20090701
  2. PAXIL [Concomitant]
  3. BACLOFEN [Concomitant]
  4. ZANTAC 150 [Concomitant]
  5. NEXIUM [Concomitant]
  6. FIBER PILL (ALL OTHER THERAPEUTIC PRODUCTS) [Concomitant]
  7. STOOL SOFTENER (DOCUSATE SODIUM) [Concomitant]

REACTIONS (6)
  - CARPAL TUNNEL SYNDROME [None]
  - INFLUENZA LIKE ILLNESS [None]
  - INJECTION SITE REACTION [None]
  - LIPOMA [None]
  - NASOPHARYNGITIS [None]
  - WEIGHT DECREASED [None]
